FAERS Safety Report 8244597-2 (Version None)
Quarter: 2012Q1

REPORT INFORMATION
  Report Type: 
  Country: None (occurrence: None)
  Receive Date: 20120329
  Receipt Date: 20120323
  Transmission Date: 20120608
  Serious: Yes (Death, Other)
  Sender: FDA-Public Use
  Company Number: US-PFIZER INC-2012023494

PATIENT
  Sex: Female
  Weight: 106.6 kg

DRUGS (24)
  1. ZYVOX [Suspect]
     Indication: STAPHYLOCOCCAL INFECTION
  2. CYMBALTA [Concomitant]
     Dosage: UNK
  3. NEXIUM [Concomitant]
     Dosage: UNK
  4. MELATONIN [Concomitant]
     Dosage: UNK
  5. DITROPAN [Concomitant]
     Dosage: UNK
  6. WELLBUTRIN [Suspect]
     Dosage: UNK
     Route: 048
  7. COREG [Concomitant]
     Dosage: UNK
  8. ZYVOX [Suspect]
     Indication: PYREXIA
  9. ZYVOX [Suspect]
     Indication: INFECTION
  10. ATROVENT [Concomitant]
     Dosage: UNK
  11. SIMVASTATIN [Concomitant]
     Dosage: UNK
  12. MUCOMYST [Concomitant]
     Dosage: UNK
  13. ACETYLSALICYLIC ACID [Concomitant]
     Dosage: UNK
  14. DORIPENEM [Concomitant]
     Dosage: UNK
  15. SENOKOT [Concomitant]
     Dosage: UNK
  16. ZYVOX [Suspect]
     Indication: PNEUMONIA
     Dosage: 600 MG, 2X/DAY
     Route: 048
     Dates: start: 20110718, end: 20110721
  17. WELLBUTRIN [Suspect]
     Indication: SEROTONIN SYNDROME
     Dosage: 75 MG, 2X/DAY
     Route: 048
  18. LISINOPRIL [Concomitant]
     Dosage: UNK
  19. FENTANYL [Concomitant]
     Dosage: UNK
  20. MIRAPEX [Concomitant]
     Dosage: UNK
  21. BUMEX [Concomitant]
     Dosage: UNK
  22. VERSED [Concomitant]
     Dosage: UNK
  23. AMIODARONE [Concomitant]
     Dosage: UNK
  24. METOPROLOL [Concomitant]
     Dosage: UNK

REACTIONS (1)
  - HYPERTHERMIA MALIGNANT [None]
